FAERS Safety Report 6904624-9 (Version None)
Quarter: 2010Q3

REPORT INFORMATION
  Report Type: 
  Country: None (occurrence: None)
  Receive Date: 20100804
  Receipt Date: 20090623
  Transmission Date: 20110219
  Serious: Yes (Other)
  Sender: FDA-Public Use
  Company Number: US-PFIZER INC-2009171365

PATIENT
  Sex: Female

DRUGS (1)
  1. LYRICA [Suspect]

REACTIONS (5)
  - FLATULENCE [None]
  - FREQUENT BOWEL MOVEMENTS [None]
  - INSOMNIA [None]
  - PAIN [None]
  - RECTAL HAEMORRHAGE [None]
